FAERS Safety Report 4675688-0 (Version None)
Quarter: 2005Q2

REPORT INFORMATION
  Report Type: 
  Country: None (occurrence: None)
  Receive Date: 20050527
  Receipt Date: 20050121
  Transmission Date: 20051028
  Serious: Yes (Life-Threatening)
  Sender: FDA-Public Use
  Company Number: US-BRISTOL-MYERS SQUIBB COMPANY-12835062

PATIENT
  Sex: Male

DRUGS (5)
  1. ERBITUX [Suspect]
     Indication: PANCREATIC CARCINOMA
     Dosage: RECEIVING SPLIT DOSES, 1ST DOSE 800 MG-D/C AFTER 9 MINUTES
     Route: 042
     Dates: start: 20041203
  2. GEMZAR [Concomitant]
     Dates: start: 20041203
  3. ANZEMET [Concomitant]
     Indication: PREMEDICATION
     Dates: start: 20041203
  4. BENADRYL [Concomitant]
     Indication: PREMEDICATION
     Route: 042
     Dates: start: 20041203
  5. DEXAMETHASONE [Concomitant]
     Indication: PREMEDICATION
     Dates: start: 20041203

REACTIONS (3)
  - INFUSION RELATED REACTION [None]
  - RASH [None]
  - SHOULDER PAIN [None]
